FAERS Safety Report 26103973 (Version 1)
Quarter: 2025Q4

REPORT INFORMATION
  Report Type: Spontaneous
  Country: EU (occurrence: EU)
  Receive Date: 20251129
  Receipt Date: 20251129
  Transmission Date: 20260118
  Serious: Yes (Other)
  Sender: TEVA
  Company Number: None

PATIENT
  Age: 68 Year
  Sex: Male
  Weight: 120 kg

DRUGS (4)
  1. PREGABALIN [Suspect]
     Active Substance: PREGABALIN
     Indication: Anxiety
     Dosage: 2 X 1 PIECE; BRAND NAME NOT SPECIFIED
     Route: 048
     Dates: start: 20251102
  2. OXAZEPAM [Suspect]
     Active Substance: OXAZEPAM
     Indication: Stress
     Dosage: 1 X 2 TABLETS; BRAND NAME NOT SPECIFIED
     Route: 048
     Dates: start: 20251020
  3. FENTANYL [Suspect]
     Active Substance: FENTANYL
     Indication: Pain
     Dosage: 1 TABLET 1 TO 3 TIMES A DAY; BRAND NAME NOT SPECIFIED
     Route: 065
     Dates: start: 20251102
  4. FENTANYL [Suspect]
     Active Substance: FENTANYL
     Indication: Pain
     Dosage: 1 IN 3 DAYS; BRAND NAME NOT SPECIFIED
     Route: 062
     Dates: start: 20250112

REACTIONS (8)
  - Hallucination [Not Recovered/Not Resolved]
  - Oedema peripheral [Not Recovered/Not Resolved]
  - Memory impairment [Not Recovered/Not Resolved]
  - Dysarthria [Not Recovered/Not Resolved]
  - Coordination abnormal [Not Recovered/Not Resolved]
  - Gait disturbance [Not Recovered/Not Resolved]
  - Tremor [Not Recovered/Not Resolved]
  - Confusional state [Not Recovered/Not Resolved]
